FAERS Safety Report 5368016-9 (Version None)
Quarter: 2007Q2

REPORT INFORMATION
  Report Type: 
  Country: None (occurrence: None)
  Receive Date: 20070622
  Receipt Date: 20070612
  Transmission Date: 20071010
  Serious: Yes (Other)
  Sender: FDA-Public Use
  Company Number: US-PFIZER INC-2007048494

PATIENT

DRUGS (1)
  1. SU-011,248 [Suspect]
     Indication: METASTATIC RENAL CELL CARCINOMA

REACTIONS (1)
  - PERICARDIAL EFFUSION [None]
